FAERS Safety Report 6690979-X (Version None)
Quarter: 2010Q2

REPORT INFORMATION
  Report Type: 
  Country: None (occurrence: None)
  Receive Date: 20100421
  Receipt Date: 20100309
  Transmission Date: 20101027
  Serious: No
  Sender: FDA-Public Use
  Company Number: US-ALLERGAN-0917511US

PATIENT
  Age: 45 Year
  Sex: Female

DRUGS (2)
  1. LATISSE [Suspect]
     Indication: GROWTH OF EYELASHES
     Dosage: 1 GTT, QHS
     Route: 061
     Dates: start: 20091201
  2. VITAMINS NOS [Concomitant]

REACTIONS (5)
  - DIZZINESS [None]
  - EYE PRURITUS [None]
  - EYELID OEDEMA [None]
  - NAUSEA [None]
  - OCULAR HYPERAEMIA [None]
